FAERS Safety Report 10308900 (Version 2)
Quarter: 2014Q3

REPORT INFORMATION
  Report Type: Report from Study
  Country: US (occurrence: US)
  Receive Date: 20140716
  Receipt Date: 20140823
  Transmission Date: 20150326
  Serious: Yes (Other)
  Sender: FDA-Public Use
  Company Number: PHEH2014US014043

PATIENT
  Sex: Female
  Weight: 84.81 kg

DRUGS (1)
  1. GILENYA [Suspect]
     Active Substance: FINGOLIMOD HYDROCHLORIDE
     Indication: MULTIPLE SCLEROSIS
     Dosage: 0.5 MG, QD
     Route: 048
     Dates: start: 20140603

REACTIONS (3)
  - Optic neuritis [Recovering/Resolving]
  - Visual field defect [Recovering/Resolving]
  - Visual impairment [Recovering/Resolving]
